FAERS Safety Report 24738658 (Version 4)
Quarter: 2025Q1

REPORT INFORMATION
  Report Type: Report from Study
  Country: CA (occurrence: CA)
  Receive Date: 20241216
  Receipt Date: 20250204
  Transmission Date: 20250409
  Serious: Yes (Other)
  Sender: NOVARTIS
  Company Number: CA-002147023-NVSC2024CA219290

PATIENT
  Sex: Female

DRUGS (1)
  1. KESIMPTA [Suspect]
     Active Substance: OFATUMUMAB
     Indication: Relapsing-remitting multiple sclerosis
     Route: 058
     Dates: start: 20240128

REACTIONS (12)
  - Atypical pneumonia [Unknown]
  - Cough [Not Recovered/Not Resolved]
  - Musculoskeletal chest pain [Not Recovered/Not Resolved]
  - COVID-19 [Unknown]
  - Nasopharyngitis [Unknown]
  - Influenza [Unknown]
  - Bronchitis [Unknown]
  - Illness [Not Recovered/Not Resolved]
  - Viral infection [Unknown]
  - Insomnia [Unknown]
  - Dyspnoea [Unknown]
  - Infection [Unknown]

NARRATIVE: CASE EVENT DATE: 20240101
